FAERS Safety Report 9343153 (Version 1)
Quarter: 2013Q2

REPORT INFORMATION
  Report Type: Spontaneous
  Country: BR (occurrence: BR)
  Receive Date: 20130611
  Receipt Date: 20130611
  Transmission Date: 20140414
  Serious: Yes (Other)
  Sender: FDA-Public Use
  Company Number: BR-PFIZER INC-2013172175

PATIENT
  Age: 71 Year
  Sex: Female
  Weight: 42 kg

DRUGS (3)
  1. XALATAN [Suspect]
     Indication: GLAUCOMA
     Dosage: 3 UG (ONE DROP IN EACH EYE), 1X/DAY
     Route: 047
     Dates: start: 20120427
  2. FRONTAL [Suspect]
     Indication: DEPRESSION
     Dosage: 1 MG (ONE TABLET), 1X/DAY
     Route: 047
     Dates: start: 20070515
  3. FRONTAL [Suspect]
     Indication: DEPRESSED MOOD

REACTIONS (8)
  - Eye degenerative disorder [Not Recovered/Not Resolved]
  - Cataract [Unknown]
  - Kyphosis [Not Recovered/Not Resolved]
  - Upper limb fracture [Unknown]
  - Fall [Unknown]
  - Vision blurred [Not Recovered/Not Resolved]
  - Balance disorder [Not Recovered/Not Resolved]
  - Muscular weakness [Unknown]
